FAERS Safety Report 12056707 (Version 2)
Quarter: 2016Q1

REPORT INFORMATION
  Report Type: Spontaneous
  Country: US (occurrence: US)
  Receive Date: 20160209
  Receipt Date: 20160330
  Transmission Date: 20160526
  Serious: Yes (Hospitalization)
  Sender: FDA-Public Use
  Company Number: US-CELGENEUS-USA-2016020832

PATIENT
  Age: 68 Year
  Sex: Female
  Weight: 71.5 kg

DRUGS (9)
  1. ABRAXANE [Suspect]
     Active Substance: PACLITAXEL
     Indication: PANCREATIC CARCINOMA
     Route: 041
     Dates: start: 20151106
  2. GEMCITABINE [Suspect]
     Active Substance: GEMCITABINE\GEMCITABINE HYDROCHLORIDE
     Indication: PANCREATIC CARCINOMA
     Route: 065
     Dates: start: 20151106
  3. GEMCITABINE [Suspect]
     Active Substance: GEMCITABINE\GEMCITABINE HYDROCHLORIDE
     Route: 065
     Dates: start: 20151120
  4. ABRAXANE [Suspect]
     Active Substance: PACLITAXEL
     Route: 041
     Dates: start: 20151204
  5. GEMCITABINE [Suspect]
     Active Substance: GEMCITABINE\GEMCITABINE HYDROCHLORIDE
     Route: 065
     Dates: start: 20151204
  6. NECUPARANIB/PLACEBO [Suspect]
     Active Substance: NECUPARANIB
     Route: 065
     Dates: start: 20151126
  7. ABRAXANE [Suspect]
     Active Substance: PACLITAXEL
     Route: 041
     Dates: start: 20151120
  8. NECUPARANIB/PLACEBO [Suspect]
     Active Substance: NECUPARANIB
     Indication: PANCREATIC CARCINOMA
     Route: 065
     Dates: start: 20151106
  9. NECUPARANIB/PLACEBO [Suspect]
     Active Substance: NECUPARANIB
     Route: 065
     Dates: end: 20151123

REACTIONS (3)
  - Vomiting [Recovered/Resolved]
  - Diarrhoea [Unknown]
  - Nausea [Recovered/Resolved]

NARRATIVE: CASE EVENT DATE: 201511
